FAERS Safety Report 5593221-6 (Version None)
Quarter: 2008Q1

REPORT INFORMATION
  Report Type: 
  Country: None (occurrence: None)
  Receive Date: 20080116
  Receipt Date: 20061222
  Transmission Date: 20080703
  Serious: No
  Sender: FDA-Public Use
  Company Number: US-ABBOTT-06P-163-0414856-00

PATIENT
  Sex: Female
  Weight: 68.1 kg

DRUGS (1)
  1. EPROSARTAN MESYLATE [Suspect]
     Indication: HYPERTENSION
     Route: 048
     Dates: start: 20030101

REACTIONS (1)
  - BLOOD PRESSURE INCREASED [None]
